FAERS Safety Report 7541553-4 (Version None)
Quarter: 2011Q2

REPORT INFORMATION
  Report Type: 
  Country: None (occurrence: None)
  Receive Date: 20110613
  Receipt Date: 20110608
  Transmission Date: 20111010
  Serious: No
  Sender: FDA-Public Use
  Company Number: US-PFIZER INC-2007056105

PATIENT
  Sex: Male
  Weight: 79.365 kg

DRUGS (5)
  1. LISINOPRIL [Concomitant]
     Indication: BLOOD PRESSURE ABNORMAL
     Dosage: 10 MG, 2X/DAY
     Route: 048
  2. OMEPRAZOLE [Concomitant]
     Indication: HYPERCHLORHYDRIA
     Dosage: 20 MG, DAILY
     Route: 048
  3. SIMVASTATIN [Concomitant]
     Indication: BLOOD CHOLESTEROL ABNORMAL
     Dosage: 10 MG, DAILY
     Route: 048
  4. XALATAN [Suspect]
     Indication: GLAUCOMA
     Dosage: 1 GTT IN BOTH EYE, DAILY
     Route: 047
  5. LOVASTATIN [Concomitant]

REACTIONS (2)
  - EYE IRRITATION [None]
  - VISUAL IMPAIRMENT [None]
